FAERS Safety Report 13650993 (Version 1)
Quarter: 2017Q2

REPORT INFORMATION
  Report Type: Report from Study
  Country: US (occurrence: US)
  Receive Date: 20170614
  Receipt Date: 20170614
  Transmission Date: 20170830
  Serious: Yes (Death)
  Sender: FDA-Public Use
  Company Number: US-TORRENT-00002810

PATIENT
  Age: 44 Year
  Sex: Female

DRUGS (5)
  1. ALCOHOL. [Suspect]
     Active Substance: ALCOHOL
  2. CITALOPRAM [Suspect]
     Active Substance: CITALOPRAM HYDROBROMIDE
  3. OXYCODONE [Suspect]
     Active Substance: OXYCODONE
  4. LAMOTRIGINE. [Suspect]
     Active Substance: LAMOTRIGINE
  5. ZOLPIDEM TARTRATE. [Suspect]
     Active Substance: ZOLPIDEM TARTRATE

REACTIONS (2)
  - Toxicity to various agents [Fatal]
  - Completed suicide [Fatal]
